FAERS Safety Report 6540098-8 (Version None)
Quarter: 2010Q1

REPORT INFORMATION
  Report Type: 
  Country: None (occurrence: None)
  Receive Date: 20100115
  Receipt Date: 20100108
  Transmission Date: 20100710
  Serious: Yes (Other)
  Sender: FDA-Public Use
  Company Number: US-AMGEN-QUU366754

PATIENT
  Sex: Female
  Weight: 78.5 kg

DRUGS (16)
  1. ENBREL [Suspect]
     Indication: PSORIASIS
     Route: 058
     Dates: start: 20040101
  2. DIPHENOXYLATE [Concomitant]
     Route: 048
  3. DESONIDE [Concomitant]
  4. GLIPIZIDE [Concomitant]
     Route: 048
  5. SIMVASTATIN [Concomitant]
     Route: 048
  6. NORVASC [Concomitant]
     Route: 048
  7. HYDROCHLOROTHIAZIDE [Concomitant]
     Route: 048
  8. POTASSIUM CHLORIDE [Concomitant]
     Route: 048
  9. ALTACE [Concomitant]
     Route: 048
  10. LORAZEPAM [Concomitant]
     Route: 048
  11. ATENOLOL [Concomitant]
     Route: 048
  12. AMBIEN [Concomitant]
     Route: 048
  13. COENZYME Q10 [Concomitant]
     Route: 048
  14. DIPHENHYDRAMINE [Concomitant]
     Route: 048
  15. CALCIPOTRIENE [Concomitant]
  16. MULTI-VITAMINS [Concomitant]

REACTIONS (6)
  - CAROTID ARTERY STENOSIS [None]
  - DIABETES MELLITUS [None]
  - DIVERTICULUM INTESTINAL [None]
  - HYPERLIPIDAEMIA [None]
  - HYPERTENSION [None]
  - INTERVERTEBRAL DISC PROTRUSION [None]
